FAERS Safety Report 20740597 (Version 2)
Quarter: 2022Q3

REPORT INFORMATION
  Report Type: Spontaneous
  Country: FR (occurrence: FR)
  Receive Date: 20220422
  Receipt Date: 20220825
  Transmission Date: 20221027
  Serious: Yes (Life-Threatening)
  Sender: FDA-Public Use
  Company Number: None

PATIENT
  Age: 66 Year
  Sex: Male
  Weight: 83 kg

DRUGS (10)
  1. PERINDOPRIL [Suspect]
     Active Substance: PERINDOPRIL
     Indication: Hypertension
     Dosage: 2MG, THERAPY START DATE ASKU. FREQUENCY TIME 1DAYS
     Route: 048
  2. ESOMEPRAZOLE [Suspect]
     Active Substance: ESOMEPRAZOLE
     Indication: Product used for unknown indication
     Dosage: 40MG, THERAPY START DATE ASKU, FREQUENCY TIME 1DAYS
     Route: 048
  3. FUROSEMIDE [Suspect]
     Active Substance: FUROSEMIDE
     Indication: Ascites
     Dosage: 40MG, THERAPY START DATE ASKU, FREQUENCY TIME 1DAYS
     Route: 048
  4. SITAGLIPTIN [Suspect]
     Active Substance: SITAGLIPTIN
     Indication: Diabetes mellitus
     Dosage: 100MG, THERAPY START DATE ASKU, FREQUENCY TIME 1DAYS
     Route: 048
  5. HYDROXYZINE HYDROCHLORIDE [Suspect]
     Active Substance: HYDROXYZINE HYDROCHLORIDE
     Indication: Insomnia
     Dosage: IF NECESSARY, 25MG, THERAPY START DATE ASKU, FREQUENCY TIME 1DAYS
     Route: 048
  6. SPIRONOLACTONE [Suspect]
     Active Substance: SPIRONOLACTONE
     Indication: Ascites
     Dosage: 50MG,THERAPY START DATE ASKU, FREQUENCY TIME 1DAYS
     Route: 048
  7. BISOPROLOL FUMARATE [Suspect]
     Active Substance: BISOPROLOL FUMARATE
     Indication: Hypertension
     Dosage: 5MG, THERAPY START DATE ASKU, FREQUENCY TIME 1DAYS
     Route: 048
  8. BEVACIZUMAB [Suspect]
     Active Substance: BEVACIZUMAB
     Indication: Hepatocellular carcinoma
     Dosage: BEVACIZUMAB ((MAMMAL/HAMSTER/CHO CELLS)), 1300MG, FREQUENCY TIME 21DAYS, DURATION 147DAYS
     Route: 042
     Dates: start: 20211027, end: 20220323
  9. TECENTRIQ [Suspect]
     Active Substance: ATEZOLIZUMAB
     Indication: Hepatocellular carcinoma
     Dosage: STRENGTH, UNIT DOSE:1200 MG,FREQUENCY TIME 21DAYS, DURATION 189DAYS
     Route: 042
     Dates: start: 20210915, end: 20220323
  10. ELIQUIS [Suspect]
     Active Substance: APIXABAN
     Indication: Thrombosis prophylaxis
     Dosage: 10MG, THERAPY START DATE ASKU, FREQUENCY TIME 1DAYS, STRENGTH 5MG
     Route: 048

REACTIONS (2)
  - Hyperbilirubinaemia [Not Recovered/Not Resolved]
  - Jaundice [Not Recovered/Not Resolved]

NARRATIVE: CASE EVENT DATE: 20211206
